FAERS Safety Report 14531284 (Version 1)
Quarter: 2018Q1

REPORT INFORMATION
  Report Type: Spontaneous
  Country: US (occurrence: US)
  Receive Date: 20180213
  Receipt Date: 20180213
  Transmission Date: 20180509
  Serious: Yes (Other)
  Sender: FDA-Public Use
  Company Number: None

PATIENT
  Age: 62 Year
  Sex: Female
  Weight: 76.95 kg

DRUGS (26)
  1. CETIRIZINE [Concomitant]
     Active Substance: CETIRIZINE HYDROCHLORIDE
  2. RANITIDINE. [Concomitant]
     Active Substance: RANITIDINE
  3. B6 [Concomitant]
     Active Substance: PYRIDOXINE HYDROCHLORIDE
  4. C [Concomitant]
  5. COQ10 [Concomitant]
     Active Substance: UBIDECARENONE
  6. MULTI VIT [Concomitant]
  7. PRAVASTATIN. [Concomitant]
     Active Substance: PRAVASTATIN
  8. TOPIRAMATE. [Concomitant]
     Active Substance: TOPIRAMATE
  9. HYDROXYCHLOROQUINE [Concomitant]
     Active Substance: HYDROXYCHLOROQUINE
  10. RANEXA [Concomitant]
     Active Substance: RANOLAZINE
  11. HYDROXYZINE [Concomitant]
     Active Substance: HYDROXYZINE HYDROCHLORIDE
  12. OMEGA 3 [Concomitant]
     Active Substance: OMEGA-3 FATTY ACIDS
  13. VITAMIN B COMPLEX [Concomitant]
     Active Substance: CYANOCOBALAMIN\DEXPANTHENOL\NIACINAMIDE\PYRIDOXINE HYDROCHLORIDE\RIBOFLAVIN 5^-PHOSPHATE SODIUM\THIAMINE HYDROCHLORIDE\VITAMIN B COMPLEX
  14. METOPROLOL. [Concomitant]
     Active Substance: METOPROLOL
  15. AZATHIOPRINE. [Concomitant]
     Active Substance: AZATHIOPRINE
  16. CLOPIDOGREL [Concomitant]
     Active Substance: CLOPIDOGREL BISULFATE
  17. B1 [Concomitant]
  18. D [Concomitant]
  19. D2 [Concomitant]
  20. BOTOX [Suspect]
     Active Substance: ONABOTULINUMTOXINA
     Indication: MIGRAINE
     Dosage: ?          OTHER FREQUENCY:31 SHOTS AT ONCE;?
     Route: 058
     Dates: start: 20180110
  21. GABAPENTIN. [Concomitant]
     Active Substance: GABAPENTIN
  22. CLONAZEPAM. [Concomitant]
     Active Substance: CLONAZEPAM
  23. B12 SHOTS [Concomitant]
     Active Substance: CYANOCOBALAMIN
  24. E [Concomitant]
  25. FOLIC ACID. [Concomitant]
     Active Substance: FOLIC ACID
  26. IRON [Concomitant]
     Active Substance: IRON

REACTIONS (13)
  - Vision blurred [None]
  - Musculoskeletal pain [None]
  - Pain in jaw [None]
  - Neck pain [None]
  - Eyelid ptosis [None]
  - Blood pressure increased [None]
  - Pruritus [None]
  - Dysgeusia [None]
  - Dysphonia [None]
  - Injection site pain [None]
  - Headache [None]
  - Muscular weakness [None]
  - Dizziness [None]

NARRATIVE: CASE EVENT DATE: 20180115
